FAERS Safety Report 17509705 (Version 1)
Quarter: 2020Q1

REPORT INFORMATION
  Report Type: Spontaneous
  Country: US (occurrence: US)
  Receive Date: 20200306
  Receipt Date: 20200306
  Transmission Date: 20200409
  Serious: Yes (Life-Threatening, Hospitalization)
  Sender: FDA-Public Use
  Company Number: None

PATIENT
  Age: 82 Year
  Sex: Male
  Weight: 60 kg

DRUGS (1)
  1. METFORMIN [Suspect]
     Active Substance: METFORMIN HYDROCHLORIDE
     Indication: TYPE 2 DIABETES MELLITUS
     Route: 048

REACTIONS (7)
  - Vomiting [None]
  - Acute stress disorder [None]
  - Acute kidney injury [None]
  - Respiratory failure [None]
  - Lactic acidosis [None]
  - Septic shock [None]
  - Pain [None]

NARRATIVE: CASE EVENT DATE: 20191101
